FAERS Safety Report 21369349 (Version 1)
Quarter: 2022Q3

REPORT INFORMATION
  Report Type: Spontaneous
  Country: US (occurrence: None)
  Receive Date: 20220922
  Receipt Date: 20220922
  Transmission Date: 20221027
  Serious: Yes (Other)
  Sender: FDA-Public Use
  Company Number: None

PATIENT
  Age: 72 Year
  Sex: Female
  Weight: 71.55 kg

DRUGS (9)
  1. REPATHA [Suspect]
     Active Substance: EVOLOCUMAB
     Indication: Blood cholesterol abnormal
     Dosage: FREQUENCY : EVERY OTHER WEEK;?
     Route: 058
  2. XANAX [Concomitant]
     Active Substance: ALPRAZOLAM
  3. DOXYCYCLINE [Concomitant]
     Active Substance: DOXYCYCLINE
  4. PRILOSEC [Concomitant]
     Active Substance: OMEPRAZOLE MAGNESIUM
  5. LEVOTHYROXINE [Concomitant]
     Active Substance: LEVOTHYROXINE
  6. ESTROGENS [Concomitant]
     Active Substance: ESTROGENS
  7. C [Concomitant]
  8. D2 [Concomitant]
  9. VITAMIN B12 [Concomitant]
     Active Substance: CYANOCOBALAMIN

REACTIONS (1)
  - Memory impairment [None]

NARRATIVE: CASE EVENT DATE: 20220301
